FAERS Safety Report 8797984 (Version 2)
Quarter: 2015Q1

REPORT INFORMATION
  Report Type: Report from Study
  Country: US (occurrence: US)
  Receive Date: 20120919
  Receipt Date: 20150302
  Transmission Date: 20150721
  Serious: Yes (Death, Other)
  Sender: FDA-Public Use
  Company Number: US-ROCHE-1091112

PATIENT
  Age: 56 Year
  Sex: Female

DRUGS (15)
  1. KYTRIL [Concomitant]
     Active Substance: GRANISETRON HYDROCHLORIDE
     Route: 048
  2. TAXOL [Concomitant]
     Active Substance: PACLITAXEL
     Route: 042
  3. NEUPOGEN [Concomitant]
     Active Substance: FILGRASTIM
     Route: 065
  4. CYTOXAN [Concomitant]
     Active Substance: CYCLOPHOSPHAMIDE
     Route: 042
  5. BENADRYL [Concomitant]
     Active Substance: DIPHENHYDRAMINE HYDROCHLORIDE
     Route: 042
  6. DECADRON [Concomitant]
     Active Substance: DEXAMETHASONE
     Route: 042
  7. CYTOXAN [Concomitant]
     Active Substance: CYCLOPHOSPHAMIDE
     Route: 042
  8. BENADRYL [Concomitant]
     Active Substance: DIPHENHYDRAMINE HYDROCHLORIDE
     Route: 042
  9. ARANESP [Concomitant]
     Active Substance: DARBEPOETIN ALFA
     Route: 065
  10. GEMZAR [Concomitant]
     Active Substance: GEMCITABINE HYDROCHLORIDE
     Route: 042
  11. TAGAMET [Concomitant]
     Active Substance: CIMETIDINE
     Route: 065
  12. AVASTIN [Suspect]
     Active Substance: BEVACIZUMAB
     Indication: MALIGNANT NEOPLASM OF UTERINE ADNEXA
     Route: 042
  13. AVASTIN [Suspect]
     Active Substance: BEVACIZUMAB
     Indication: OVARIAN CANCER
  14. ANZEMET [Concomitant]
     Active Substance: DOLASETRON MESYLATE
     Route: 065
  15. ANZEMET [Concomitant]
     Active Substance: DOLASETRON MESYLATE
     Route: 065

REACTIONS (3)
  - Disease progression [Unknown]
  - Death [Fatal]
  - Off label use [Unknown]

NARRATIVE: CASE EVENT DATE: 20080914
